FAERS Safety Report 10009536 (Version 1)
Quarter: 2014Q1

REPORT INFORMATION
  Report Type: Spontaneous
  Country: US (occurrence: US)
  Receive Date: 20140312
  Receipt Date: 20140312
  Transmission Date: 20141002
  Serious: No
  Sender: FDA-Public Use
  Company Number: US-INCYTE CORPORATION-2012IN001825

PATIENT
  Age: 76 Year
  Sex: Male

DRUGS (5)
  1. JAKAFI [Suspect]
     Indication: MYELOFIBROSIS
     Dosage: 15 MG, BID
     Route: 048
  2. LANSOPRAZOLE [Concomitant]
  3. OXYCODONE [Concomitant]
  4. VALIUM [Concomitant]
  5. TRUSOPT [Concomitant]

REACTIONS (2)
  - Haemoglobin abnormal [Unknown]
  - Anal haemorrhage [Unknown]
